FAERS Safety Report 18343908 (Version 1)
Quarter: 2020Q4

REPORT INFORMATION
  Report Type: Spontaneous
  Country: US (occurrence: US)
  Receive Date: 20201002
  Receipt Date: 20201002
  Transmission Date: 20210114
  Serious: Yes (Hospitalization)
  Sender: FDA-Public Use
  Company Number: None

PATIENT
  Age: 81 Year
  Sex: Male

DRUGS (1)
  1. LORAZEPAM (LORAZEPAM 1MG TAB) [Suspect]
     Active Substance: LORAZEPAM
     Indication: INSOMNIA
     Dosage: ?          OTHER FREQUENCY:AT BEDTIME;?
     Route: 048
     Dates: start: 20200616, end: 20200913

REACTIONS (5)
  - Fall [None]
  - Ecchymosis [None]
  - Refusal of treatment by patient [None]
  - Mental status changes [None]
  - Asthenia [None]

NARRATIVE: CASE EVENT DATE: 20200910
